FAERS Safety Report 4490784-9 (Version None)
Quarter: 2004Q4

REPORT INFORMATION
  Report Type: 
  Country: None (occurrence: None)
  Receive Date: 20041102
  Receipt Date: 20040531
  Transmission Date: 20050328
  Serious: No
  Sender: FDA-Public Use
  Company Number: ES-AMGEN-US079787

PATIENT
  Sex: Female

DRUGS (7)
  1. ENBREL [Suspect]
     Indication: RHEUMATOID ARTHRITIS
     Route: 058
     Dates: start: 20040124, end: 20040308
  2. CELEBREX [Concomitant]
     Dates: start: 19950101
  3. INDOMETHACIN [Concomitant]
  4. ACECLOFENAC [Concomitant]
     Route: 048
  5. ISONIAZID [Concomitant]
     Route: 048
  6. URBASON [Concomitant]
     Dates: start: 19950101
  7. OMEPRAZOLE [Concomitant]

REACTIONS (3)
  - ERYTHEMA [None]
  - OEDEMA [None]
  - PRURITUS [None]
